FAERS Safety Report 12757333 (Version 1)
Quarter: 2016Q3

REPORT INFORMATION
  Report Type: Spontaneous
  Country: US (occurrence: US)
  Receive Date: 20160919
  Receipt Date: 20160919
  Transmission Date: 20161109
  Serious: No
  Sender: FDA-Public Use
  Company Number: ALCN2016US006409

PATIENT
  Sex: Male

DRUGS (3)
  1. SYSTANE BALANCE [Suspect]
     Active Substance: PROPYLENE GLYCOL
     Dosage: UNK
     Route: 047
  2. SYSTANE BALANCE [Suspect]
     Active Substance: PROPYLENE GLYCOL
     Dosage: UNK
     Route: 047
  3. SYSTANE BALANCE [Suspect]
     Active Substance: PROPYLENE GLYCOL
     Indication: DRY EYE
     Dosage: UNK
     Route: 047
     Dates: start: 2016, end: 2016

REACTIONS (3)
  - Vision blurred [Unknown]
  - Photophobia [Unknown]
  - Condition aggravated [Unknown]
